FAERS Safety Report 4455577-7 (Version None)
Quarter: 2004Q3

REPORT INFORMATION
  Report Type: 
  Country: None (occurrence: None)
  Receive Date: 20040917
  Receipt Date: 20040827
  Transmission Date: 20050211
  Serious: Yes (Hospitalization, Other)
  Sender: FDA-Public Use
  Company Number: JP_040804120

PATIENT
  Age: 82 Year
  Sex: Male
  Weight: 34 kg

DRUGS (6)
  1. GEMZAR [Suspect]
     Indication: NON-SMALL CELL LUNG CANCER
     Dosage: 800 MG OTHER
  2. PARAPLATIN [Concomitant]
  3. NASEA (RAMOSETRON HYDROCHLORIDE) [Concomitant]
  4. DECADRON #1 (DEXAMETHASONE SODIUM PHOSPHATE) [Concomitant]
  5. MUCOSOLATE (AMBROXOL HYDROCHLORIDE) [Concomitant]
  6. MAGNESIUM OXIDE [Concomitant]

REACTIONS (6)
  - ANAEMIA [None]
  - ANOREXIA [None]
  - INJECTION SITE VESICLES [None]
  - NECROSIS [None]
  - NEUTROPHIL COUNT DECREASED [None]
  - PLATELET COUNT DECREASED [None]
